FAERS Safety Report 6801047-8 (Version None)
Quarter: 2010Q2

REPORT INFORMATION
  Report Type: 
  Country: None (occurrence: None)
  Receive Date: 20100629
  Receipt Date: 20100617
  Transmission Date: 20101027
  Serious: Yes (Death, Other)
  Sender: FDA-Public Use
  Company Number: SE-ELI_LILLY_AND_COMPANY-SE201006004675

PATIENT
  Age: 63 Year
  Sex: Female

DRUGS (4)
  1. ZYPREXA [Suspect]
     Indication: SCHIZOPHRENIA
     Dosage: 10 MG, DAILY (1/D)
     Route: 048
     Dates: start: 20090816, end: 20090917
  2. ZYPREXA [Suspect]
     Dosage: 20 MG, DAILY (1/D)
     Route: 048
     Dates: start: 20090917, end: 20091117
  3. ACETAMINOPHEN [Concomitant]
  4. ZUCLOPENTHIXOL [Concomitant]

REACTIONS (2)
  - DRUG THERAPEUTIC INCOMPATIBILITY [None]
  - SUDDEN DEATH [None]
